FAERS Safety Report 4493616-8 (Version None)
Quarter: 2004Q3

REPORT INFORMATION
  Report Type: 
  Country: None (occurrence: None)
  Receive Date: 20040921
  Receipt Date: 20040112
  Transmission Date: 20050211
  Serious: Yes (Hospitalization)
  Sender: FDA-Public Use
  Company Number: 163-20785-04010366

PATIENT
  Age: 65 Year
  Sex: Male
  Weight: 107.9561 kg

DRUGS (1)
  1. THALOMID [Suspect]
     Indication: NON-SMALL CELL LUNG CANCER STAGE IIIB
     Dosage: 200 MG, HS DAILY, ORAL
     Route: 048
     Dates: start: 20030527

REACTIONS (2)
  - DISEASE PROGRESSION [None]
  - PERICARDIAL EFFUSION [None]
